FAERS Safety Report 17392233 (Version 1)
Quarter: 2020Q1

REPORT INFORMATION
  Report Type: Spontaneous
  Country: DE (occurrence: DE)
  Receive Date: 20200207
  Receipt Date: 20200207
  Transmission Date: 20200409
  Serious: Yes (Other)
  Sender: FDA-Public Use
  Company Number: NVSC2020DE026079

PATIENT
  Sex: Female

DRUGS (13)
  1. CANAKINUMAB. [Suspect]
     Active Substance: CANAKINUMAB
     Indication: AUTOIMMUNE HEPATITIS
     Dosage: UNK
     Route: 065
     Dates: start: 201404, end: 201412
  2. CYCLOSPORINE. [Suspect]
     Active Substance: CYCLOSPORINE
     Indication: POLYARTHRITIS
  3. CANAKINUMAB. [Suspect]
     Active Substance: CANAKINUMAB
     Indication: PYREXIA
     Dosage: 150 MG (EVERY 8 WEEK)
     Route: 065
     Dates: start: 201512
  4. CYCLOSPORINE. [Suspect]
     Active Substance: CYCLOSPORINE
     Indication: AUTOIMMUNE HEPATITIS
     Dosage: UNK
     Route: 065
     Dates: end: 201310
  5. CYCLOSPORINE. [Suspect]
     Active Substance: CYCLOSPORINE
     Indication: PYREXIA
  6. PREDNISOLONE. [Concomitant]
     Active Substance: PREDNISOLONE
     Indication: POLYARTHRITIS
     Dosage: 7.5 MG, QD
     Route: 065
  7. CANAKINUMAB. [Suspect]
     Active Substance: CANAKINUMAB
     Indication: BONE MARROW DISORDER
     Dosage: 150 MG (EVERY 2 WEEKS)
     Route: 065
  8. PREGABALINE [Concomitant]
     Active Substance: PREGABALIN
     Indication: PRODUCT USED FOR UNKNOWN INDICATION
     Dosage: UNK
     Route: 065
  9. UNIZINK [Concomitant]
     Active Substance: AVOBENZONE\HOMOSALATE\OCTISALATE
     Indication: PRODUCT USED FOR UNKNOWN INDICATION
     Dosage: UNK
     Route: 065
  10. PENTAZOLE [Concomitant]
     Indication: PRODUCT USED FOR UNKNOWN INDICATION
     Dosage: UNK
     Route: 065
  11. CANAKINUMAB. [Suspect]
     Active Substance: CANAKINUMAB
     Indication: POLYARTHRITIS
     Dosage: 300 MG (EVERY 4 WEEKS)
     Route: 065
     Dates: start: 201603
  12. CYCLOSPORINE. [Suspect]
     Active Substance: CYCLOSPORINE
     Indication: BONE MARROW DISORDER
  13. URSOFALK [Concomitant]
     Active Substance: URSODIOL
     Indication: AUTOIMMUNE HEPATITIS
     Dosage: UNK
     Route: 065

REACTIONS (13)
  - Liver disorder [Unknown]
  - Drug ineffective [Unknown]
  - Septic shock [Unknown]
  - Neutropenic colitis [Unknown]
  - Cardiomyopathy [Unknown]
  - Rash [Unknown]
  - Acute kidney injury [Unknown]
  - Body temperature increased [Unknown]
  - Coagulopathy [Unknown]
  - Intensive care unit acquired weakness [Unknown]
  - Dysphagia [Unknown]
  - Pneumonia [Unknown]
  - Respiratory failure [Unknown]
